FAERS Safety Report 20315143 (Version 1)
Quarter: 2022Q1

REPORT INFORMATION
  Report Type: Spontaneous
  Country: US (occurrence: US)
  Receive Date: 20220110
  Receipt Date: 20220110
  Transmission Date: 20220423
  Serious: No
  Sender: FDA-Public Use
  Company Number: US-TELIGENT, INC-20211100109

PATIENT

DRUGS (1)
  1. ECONAZOLE NITRATE [Suspect]
     Active Substance: ECONAZOLE NITRATE
     Indication: Product used for unknown indication
     Dosage: UNKOWN DOSE

REACTIONS (2)
  - Gait disturbance [Unknown]
  - Furuncle [Unknown]

NARRATIVE: CASE EVENT DATE: 20211114
